FAERS Safety Report 5598221-8 (Version None)
Quarter: 2008Q1

REPORT INFORMATION
  Report Type: 
  Country: None (occurrence: None)
  Receive Date: 20080117
  Receipt Date: 20080117
  Transmission Date: 20080703
  Serious: Yes (Other)
  Sender: FDA-Public Use
  Company Number: None

PATIENT
  Age: 8 Month
  Sex: Male
  Weight: 12.9 kg

DRUGS (6)
  1. CARBOPLATIN [Suspect]
     Indication: RETINOBLASTOMA
     Dosage: 186MG/ML  EVERY MONTH  IV DRIP
     Route: 041
     Dates: start: 20071016, end: 20080107
  2. ETOPOSIDE [Concomitant]
  3. BENEDRYL [Concomitant]
  4. ACETAMINOPHEN [Concomitant]
  5. HYDROCORTISONE [Concomitant]
  6. RANIDITINE [Concomitant]

REACTIONS (3)
  - INFUSION RELATED REACTION [None]
  - PALLOR [None]
  - RASH ERYTHEMATOUS [None]
